FAERS Safety Report 14015887 (Version 10)
Quarter: 2019Q1

REPORT INFORMATION
  Report Type: Report from Study
  Country: IL (occurrence: IL)
  Receive Date: 20170927
  Receipt Date: 20190117
  Transmission Date: 20190417
  Serious: Yes (Hospitalization, Other)
  Sender: FDA-Public Use
  Company Number: IL-JNJFOC-20170903100

PATIENT
  Age: 60 Year
  Sex: Female

DRUGS (3)
  1. NEOTIGASON [Suspect]
     Active Substance: ACITRETIN
     Indication: PSORIATIC ARTHROPATHY
     Route: 065
     Dates: start: 2017
  2. SIMPONI [Suspect]
     Active Substance: GOLIMUMAB
     Indication: PSORIATIC ARTHROPATHY
     Route: 058
  3. SIMPONI [Suspect]
     Active Substance: GOLIMUMAB
     Indication: PSORIATIC ARTHROPATHY
     Route: 058
     Dates: start: 20170913, end: 20180412

REACTIONS (9)
  - Hospitalisation [Unknown]
  - Neoplasm malignant [Unknown]
  - Dry mouth [Not Recovered/Not Resolved]
  - Psoriasis [Recovering/Resolving]
  - Wrong technique in product usage process [Unknown]
  - Psoriatic arthropathy [Not Recovered/Not Resolved]
  - Vascular injury [Recovered/Resolved]
  - Underdose [Unknown]
  - Drug ineffective [Unknown]

NARRATIVE: CASE EVENT DATE: 2017
